FAERS Safety Report 7617397-1 (Version None)
Quarter: 2011Q3

REPORT INFORMATION
  Report Type: 
  Country: None (occurrence: None)
  Receive Date: 20110718
  Receipt Date: 20110708
  Transmission Date: 20111222
  Serious: No
  Sender: FDA-Public Use
  Company Number: US-PFIZER INC-2011155913

PATIENT
  Sex: Male

DRUGS (3)
  1. VIAGRA [Suspect]
     Dosage: 25 MG, 2X/DAY
  2. VIAGRA [Suspect]
     Dosage: 100 MG, UNK
  3. VIAGRA [Suspect]
     Dosage: 50 MG, UNK

REACTIONS (3)
  - ERECTION INCREASED [None]
  - DRUG INTOLERANCE [None]
  - EYE IRRITATION [None]
